FAERS Safety Report 9364780 (Version 2)
Quarter: 2013Q2

REPORT INFORMATION
  Report Type: Spontaneous
  Country: US (occurrence: US)
  Receive Date: 20130624
  Receipt Date: 20130624
  Transmission Date: 20140414
  Serious: Yes (Hospitalization, Other)
  Sender: FDA-Public Use
  Company Number: US-UCBSA-071853

PATIENT
  Age: 26 Year
  Sex: Male

DRUGS (5)
  1. KEPPRA IR [Suspect]
     Dates: end: 201212
  2. KEPPRA XR [Suspect]
     Dosage: UNKNOWN DOSE
     Route: 048
  3. KEPPRA XR [Suspect]
     Route: 048
  4. TRILEPTAL [Concomitant]
  5. TRILEPTAL [Concomitant]
     Dosage: DOSE INCREASED

REACTIONS (9)
  - Convulsion [Recovered/Resolved]
  - Brain neoplasm [Unknown]
  - Dizziness [Unknown]
  - Petit mal epilepsy [Unknown]
  - Injury [Recovered/Resolved]
  - Overdose [Unknown]
  - Anticonvulsant drug level below therapeutic [Unknown]
  - Inappropriate schedule of drug administration [Unknown]
  - Off label use [None]
